FAERS Safety Report 23059245 (Version 2)
Quarter: 2023Q4

REPORT INFORMATION
  Report Type: Spontaneous
  Country: US (occurrence: US)
  Receive Date: 20231012
  Receipt Date: 20231122
  Transmission Date: 20240110
  Serious: Yes (Other)
  Sender: FDA-Public Use
  Company Number: US-BAYER-2023A140658

PATIENT
  Age: 34 Year
  Sex: Male

DRUGS (13)
  1. KOVALTRY [Suspect]
     Active Substance: ANTIHEMOPHILIC FACTOR, HUMAN RECOMBINANT
     Indication: Factor VIII deficiency
     Dosage: INFUSE ~ 4000 UNITS (+/-10%)
     Route: 042
  2. KOVALTRY [Suspect]
     Active Substance: ANTIHEMOPHILIC FACTOR, HUMAN RECOMBINANT
     Indication: Factor VIII deficiency
     Dosage: INFUSE ~ 4000 UNITS (+/-10%)
     Route: 042
  3. ACETAMINOPHEN\HYDROCODONE [Concomitant]
     Active Substance: ACETAMINOPHEN\HYDROCODONE
     Dosage: 10 MG Q6HR
     Route: 048
  4. ETODOLAC [Concomitant]
     Active Substance: ETODOLAC
     Dosage: 1 DF, BID
     Route: 048
  5. PREDNISONE [Concomitant]
     Active Substance: PREDNISONE
  6. BUSPIRONE HCL [Concomitant]
     Active Substance: BUSPIRONE HYDROCHLORIDE
     Dosage: 1 DF, BID
     Route: 048
  7. PRAZOSIN HYDROCHLORIDE [Concomitant]
     Active Substance: PRAZOSIN HYDROCHLORIDE
     Dosage: 1 DF, TID
  8. LACTULOSE [Concomitant]
     Active Substance: LACTULOSE
  9. AMINOCAPROIC ACID [Concomitant]
     Active Substance: AMINOCAPROIC ACID
     Dosage: 5MG=20ML
     Route: 048
  10. CONSTULOSE [Concomitant]
     Active Substance: LACTULOSE
     Dosage: 15 ML, PRN
     Route: 048
  11. EPINEPHRINE [Concomitant]
     Active Substance: EPINEPHRINE
  12. SERTRALINE [Concomitant]
     Active Substance: SERTRALINE HYDROCHLORIDE
     Dosage: 1 DF, QD
     Route: 048
  13. TRAZODONE [Concomitant]
     Active Substance: TRAZODONE HYDROCHLORIDE
     Dosage: 1 DF, BID
     Route: 048

REACTIONS (6)
  - Haemorrhage [Recovered/Resolved]
  - Joint injury [Recovered/Resolved]
  - Pain in extremity [None]
  - Mass [None]
  - Contusion [None]
  - Foot fracture [None]

NARRATIVE: CASE EVENT DATE: 20230926
